FAERS Safety Report 25890949 (Version 1)
Quarter: 2025Q4

REPORT INFORMATION
  Report Type: Spontaneous
  Country: JP (occurrence: JP)
  Receive Date: 20251007
  Receipt Date: 20251007
  Transmission Date: 20260117
  Serious: Yes (Hospitalization, Other)
  Sender: MERCK SHARP & DOHME LLC
  Company Number: JP-009507513-2336158

PATIENT
  Age: 75 Year
  Sex: Male

DRUGS (3)
  1. KEYTRUDA [Suspect]
     Active Substance: PEMBROLIZUMAB
     Indication: Gastric cancer stage IV
     Dosage: 6 CYCLES
     Route: 065
  2. TS-1 [Suspect]
     Active Substance: GIMERACIL\OTERACIL POTASSIUM\TEGAFUR
     Indication: Gastric cancer stage IV
     Dosage: 6 CYCLES
     Route: 065
  3. OXALIPLATIN [Suspect]
     Active Substance: OXALIPLATIN
     Indication: Gastric cancer stage IV
     Dosage: 6 CYCLES
     Route: 065

REACTIONS (11)
  - Gastrectomy [Unknown]
  - Stomatitis [Unknown]
  - Neutrophil count decreased [Unknown]
  - Malaise [Unknown]
  - Taste disorder [Unknown]
  - Therapy partial responder [Unknown]
  - Neuropathy peripheral [Unknown]
  - Product use issue [Unknown]
  - Platelet count decreased [Unknown]
  - Blood albumin decreased [Unknown]
  - Anaemia [Unknown]
